FAERS Safety Report 5590419-8 (Version None)
Quarter: 2008Q1

REPORT INFORMATION
  Report Type: 
  Country: None (occurrence: None)
  Receive Date: 20080114
  Receipt Date: 20070502
  Transmission Date: 20080703
  Serious: No
  Sender: FDA-Public Use
  Company Number: US-ABBOTT-07P-163-0367315-00

PATIENT
  Sex: Male
  Weight: 85.352 kg

DRUGS (1)
  1. HYTRIN CAPSULES 10MG [Suspect]
     Indication: PROSTATOMEGALY
     Route: 048
     Dates: start: 19920101

REACTIONS (1)
  - LEFT VENTRICULAR HYPERTROPHY [None]
